FAERS Safety Report 12054137 (Version 1)
Quarter: 2016Q1

REPORT INFORMATION
  Report Type: Spontaneous
  Country: US (occurrence: US)
  Receive Date: 20160209
  Receipt Date: 20160209
  Transmission Date: 20160526
  Serious: No
  Sender: FDA-Public Use
  Company Number: US-SA-2016SA014295

PATIENT
  Sex: Male

DRUGS (2)
  1. ALIROCUMAB PREFILLED PEN [Concomitant]
     Active Substance: ALIROCUMAB
     Dosage: FREQUENCY: 1 TIME
  2. PRALUENT [Suspect]
     Active Substance: ALIROCUMAB
     Indication: BLOOD CHOLESTEROL
     Dosage: FREQUENCY: 1 TIME
     Route: 065

REACTIONS (5)
  - Pyrexia [Unknown]
  - Aphasia [Unknown]
  - Chills [Unknown]
  - Condition aggravated [Unknown]
  - Pain [Unknown]
